FAERS Safety Report 18049517 (Version 1)
Quarter: 2020Q3

REPORT INFORMATION
  Report Type: Spontaneous
  Country: US (occurrence: US)
  Receive Date: 20200721
  Receipt Date: 20200721
  Transmission Date: 20201103
  Serious: No
  Sender: FDA-Public Use
  Company Number: US-SA-2020SA185658

PATIENT

DRUGS (3)
  1. CORTISONE [CORTISONE ACETATE] [Concomitant]
     Indication: RASH
     Dosage: UNK
     Route: 065
  2. DUPIXENT [Suspect]
     Active Substance: DUPILUMAB
     Dosage: UNK
     Route: 065
     Dates: start: 20200710
  3. DUPIXENT [Suspect]
     Active Substance: DUPILUMAB
     Indication: RASH
     Dosage: 2 DF, 1X
     Route: 065
     Dates: start: 20200701, end: 20200701

REACTIONS (8)
  - Skin erosion [Unknown]
  - Off label use [Unknown]
  - Skin exfoliation [Unknown]
  - Erythema [Unknown]
  - Product use issue [Unknown]
  - Rash papular [Unknown]
  - Hypoacusis [Unknown]
  - Rash [Unknown]
